FAERS Safety Report 5929361-9 (Version None)
Quarter: 2008Q4

REPORT INFORMATION
  Report Type: 
  Country: None (occurrence: None)
  Receive Date: 20081024
  Receipt Date: 20081022
  Transmission Date: 20090506
  Serious: Yes (Other)
  Sender: FDA-Public Use
  Company Number: US-ASTRAZENECA-2008UW23466

PATIENT
  Age: 40 Year
  Sex: Female

DRUGS (5)
  1. ZOLMITRIPTAN [Suspect]
     Dosage: 5 MG AS REQUIRED
     Route: 048
     Dates: start: 20080101
  2. IMITREX [Suspect]
     Indication: MIGRAINE
     Dosage: 6 MG AS REQUIRED
     Route: 058
     Dates: start: 19940101, end: 20071201
  3. IMITREX [Suspect]
     Dosage: 25 MG AS REQUIRED
     Route: 048
     Dates: start: 20071201, end: 20080101
  4. TOPIRAMATE [Concomitant]
  5. NAPROXEN [Concomitant]

REACTIONS (4)
  - HYPOAESTHESIA [None]
  - MOVEMENT DISORDER [None]
  - MYALGIA [None]
  - NEUROPATHY PERIPHERAL [None]
